FAERS Safety Report 12328642 (Version 1)
Quarter: 2016Q2

REPORT INFORMATION
  Report Type: Spontaneous
  Country: US (occurrence: US)
  Receive Date: 20160503
  Receipt Date: 20160503
  Transmission Date: 20160815
  Serious: No
  Sender: FDA-Public Use
  Company Number: US-BEH-2015049832

PATIENT
  Sex: Female
  Weight: 90.7 kg

DRUGS (22)
  1. ACETAMINOPHEN. [Concomitant]
     Active Substance: ACETAMINOPHEN
  2. EPIPEN [Concomitant]
     Active Substance: EPINEPHRINE
  3. BIOTIN [Concomitant]
     Active Substance: BIOTIN
  4. AMOXICILLIN. [Concomitant]
     Active Substance: AMOXICILLIN
  5. BENICAR [Concomitant]
     Active Substance: OLMESARTAN MEDOXOMIL
  6. POTASSIUM CHLORIDE. [Concomitant]
     Active Substance: POTASSIUM CHLORIDE
  7. PROMETHAZINE [Concomitant]
     Active Substance: PROMETHAZINE\PROMETHAZINE HYDROCHLORIDE
  8. SYNTHROID [Concomitant]
     Active Substance: LEVOTHYROXINE SODIUM
  9. HIZENTRA [Suspect]
     Active Substance: HUMAN IMMUNOGLOBULIN G
     Indication: HYPOGAMMAGLOBULINAEMIA
     Dosage: 2 GM 10 ML VIAL
     Route: 058
  10. FLOVENT [Concomitant]
     Active Substance: FLUTICASONE PROPIONATE
  11. TERBUTALINE [Concomitant]
     Active Substance: TERBUTALINE
  12. PREVACID [Concomitant]
     Active Substance: LANSOPRAZOLE
  13. DIPHENHYDRAMINE. [Concomitant]
     Active Substance: DIPHENHYDRAMINE
  14. ATENOLOL. [Concomitant]
     Active Substance: ATENOLOL
  15. LIDOCAINE. [Concomitant]
     Active Substance: LIDOCAINE
  16. PROPAFENONE. [Concomitant]
     Active Substance: PROPAFENONE
  17. SPIRIVA [Concomitant]
     Active Substance: TIOTROPIUM BROMIDE MONOHYDRATE
  18. ATROVENT [Concomitant]
     Active Substance: IPRATROPIUM BROMIDE
  19. HIZENTRA [Suspect]
     Active Substance: HUMAN IMMUNOGLOBULIN G
     Dosage: 10 GM 50ML VIAL
     Route: 058
  20. FUROSEMIDE. [Concomitant]
     Active Substance: FUROSEMIDE
  21. SINGULAIR [Concomitant]
     Active Substance: MONTELUKAST SODIUM
  22. TRAMADOL. [Concomitant]
     Active Substance: TRAMADOL

REACTIONS (4)
  - Infusion site pruritus [Recovered/Resolved]
  - Swelling [Recovered/Resolved]
  - Infusion site urticaria [Recovered/Resolved]
  - Headache [Recovered/Resolved]
